FAERS Safety Report 9992787 (Version 1)
Quarter: 2014Q1

REPORT INFORMATION
  Report Type: Spontaneous
  Country: US (occurrence: US)
  Receive Date: 20140310
  Receipt Date: 20140310
  Transmission Date: 20141002
  Serious: No
  Sender: FDA-Public Use
  Company Number: US-ABBVIE-13P-163-1112058-00

PATIENT
  Sex: Female
  Weight: 131.66 kg

DRUGS (7)
  1. LUPRON DEPOT [Suspect]
     Indication: ENDOMETRIOSIS
     Dates: start: 20130318
  2. MIRENA [Suspect]
     Indication: PRODUCT USED FOR UNKNOWN INDICATION
     Dates: start: 20130603
  3. AGESTIN [Concomitant]
     Indication: DRUG THERAPY ENHANCEMENT
     Dates: start: 20130318, end: 201304
  4. HYDROCHLOROTHIAZICE [Concomitant]
     Indication: HYPERTENSION
  5. NORVASC [Concomitant]
     Indication: HYPERTENSION
  6. SINGULAIR [Concomitant]
     Indication: ASTHMA
  7. ZYRTEC [Concomitant]
     Indication: SEASONAL ALLERGY

REACTIONS (4)
  - Vaginal haemorrhage [Not Recovered/Not Resolved]
  - Abdominal distension [Not Recovered/Not Resolved]
  - Acne [Not Recovered/Not Resolved]
  - Hunger [Not Recovered/Not Resolved]
